FAERS Safety Report 6509356-7 (Version None)
Quarter: 2009Q4

REPORT INFORMATION
  Report Type: 
  Country: None (occurrence: None)
  Receive Date: 20091222
  Receipt Date: 20091208
  Transmission Date: 20100525
  Serious: Yes (Life-Threatening, Hospitalization)
  Sender: FDA-Public Use
  Company Number: DE-BAYER-200937851GPV

PATIENT
  Age: 68 Year
  Sex: Male

DRUGS (8)
  1. ULTRAVIST 300 [Suspect]
     Indication: RENAL NEOPLASM
     Route: 042
     Dates: start: 20091102
  2. PANTOPRAZOLE [Concomitant]
     Dosage: TOTAL DAILY DOSE: 40 MG
     Route: 048
  3. ACETYLCYSTEINE [Concomitant]
     Dosage: TOTAL DAILY DOSE: 600 MG
     Route: 048
  4. ACETYLSALICYLIC ACID [Concomitant]
     Dosage: TOTAL DAILY DOSE: 1 DF
  5. TORSEMIDE [Concomitant]
     Dosage: TOTAL DAILY DOSE: 10 MG
  6. RAMIPRIL [Concomitant]
     Dosage: TOTAL DAILY DOSE: 10 MG
  7. CARVEDILOL [Concomitant]
     Dosage: TOTAL DAILY DOSE: 2 DF
  8. ENOXAPARIN [Concomitant]
     Dosage: TOTAL DAILY DOSE: 0.8 ML
     Route: 058

REACTIONS (14)
  - ARRHYTHMIA [None]
  - BRADYARRHYTHMIA [None]
  - CARDIAC ARREST [None]
  - CYANOSIS [None]
  - DYSPNOEA [None]
  - ELECTROENCEPHALOGRAM ABNORMAL [None]
  - MENTAL DISORDER DUE TO A GENERAL MEDICAL CONDITION [None]
  - MYDRIASIS [None]
  - OEDEMA MUCOSAL [None]
  - RESPIRATORY ARREST [None]
  - SHOCK [None]
  - SKIN DISCOLOURATION [None]
  - SNEEZING [None]
  - VENTRICULAR FIBRILLATION [None]
